FAERS Safety Report 7319585-0 (Version None)
Quarter: 2011Q1

REPORT INFORMATION
  Report Type: 
  Country: None (occurrence: None)
  Receive Date: 20110228
  Receipt Date: 20100603
  Transmission Date: 20110831
  Serious: No
  Sender: FDA-Public Use
  Company Number: A0862729A

PATIENT
  Age: 55 Year
  Sex: Female

DRUGS (3)
  1. SEROQUEL [Concomitant]
  2. LAMOTRIGINE [Suspect]
     Indication: BIPOLAR DISORDER
     Dosage: 200MG AT NIGHT
     Route: 048
     Dates: start: 20090201
  3. NALTREXONE [Concomitant]

REACTIONS (3)
  - ARTHROPOD BITE [None]
  - LOCAL SWELLING [None]
  - RASH [None]
